FAERS Safety Report 21612147 (Version 1)
Quarter: 2022Q4

REPORT INFORMATION
  Report Type: Spontaneous
  Country: US (occurrence: US)
  Receive Date: 20221118
  Receipt Date: 20221118
  Transmission Date: 20230113
  Serious: No
  Sender: FDA-Public Use
  Company Number: US-BEH-2022151750

PATIENT
  Age: 7 Year
  Sex: Male

DRUGS (2)
  1. HIZENTRA [Suspect]
     Active Substance: HUMAN IMMUNOGLOBULIN G
     Indication: Hypogammaglobulinaemia
     Dosage: 4 GRAM, QOW
     Route: 058
     Dates: start: 202102
  2. HIZENTRA [Suspect]
     Active Substance: HUMAN IMMUNOGLOBULIN G
     Dosage: UNK GRAM
     Route: 065
     Dates: start: 20221030

REACTIONS (5)
  - Swelling face [Unknown]
  - Influenza [Unknown]
  - Pyrexia [Unknown]
  - Lymphadenopathy [Unknown]
  - Salivary gland enlargement [Unknown]

NARRATIVE: CASE EVENT DATE: 20221031
